FAERS Safety Report 6125142-4 (Version None)
Quarter: 2009Q1

REPORT INFORMATION
  Report Type: 
  Country: None (occurrence: None)
  Receive Date: 20090317
  Receipt Date: 20090302
  Transmission Date: 20090719
  Serious: Yes (Other)
  Sender: FDA-Public Use
  Company Number: 2008S1022966

PATIENT
  Age: 42 Year
  Sex: Female
  Weight: 81.6475 kg

DRUGS (9)
  1. FENTANYL TRANSDERMAL SYSTEM [Suspect]
     Indication: MULTIPLE SCLEROSIS
     Dosage: 50 UG, EVERY HOUR, TRANSDERMAL
     Route: 062
     Dates: start: 20081226, end: 20081227
  2. FENTANYL TRANSDERMAL SYSTEM [Suspect]
     Indication: PAIN
     Dosage: 50 UG, EVERY HOUR, TRANSDERMAL
     Route: 062
     Dates: start: 20081226, end: 20081227
  3. OXYCODONE HCL [Suspect]
  4. COCAINE [Suspect]
  5. FENTANYL TRANSDERMAL SYSTEM [Suspect]
     Dosage: 25 UG EVERY HOUR; TRANSDERMAL
     Route: 062
  6. ZELNORM [Concomitant]
  7. LEXAPRO [Concomitant]
  8. SENNA [Concomitant]
  9. HYDROCHLOROTHIAZIDE [Concomitant]

REACTIONS (13)
  - APPLICATION SITE ERYTHEMA [None]
  - APPLICATION SITE PRURITUS [None]
  - DIZZINESS [None]
  - FATIGUE [None]
  - INTENTIONAL DRUG MISUSE [None]
  - MENTAL STATUS CHANGES [None]
  - NAUSEA [None]
  - OVERDOSE [None]
  - RESPIRATORY ARREST [None]
  - RESTLESSNESS [None]
  - SOMNOLENCE [None]
  - UNRESPONSIVE TO STIMULI [None]
  - URINE OUTPUT DECREASED [None]
